FAERS Safety Report 18565341 (Version 3)
Quarter: 2021Q1

REPORT INFORMATION
  Report Type: Spontaneous
  Country: US (occurrence: US)
  Receive Date: 20201201
  Receipt Date: 20210112
  Transmission Date: 20210419
  Serious: Yes (Other)
  Sender: FDA-Public Use
  Company Number: US-SAREPTA THERAPEUTICS INC.-SRP2020-001051

PATIENT
  Age: 6 Year
  Sex: Male
  Weight: 27.6 kg

DRUGS (2)
  1. PREDNISOLONE. [Concomitant]
     Active Substance: PREDNISOLONE
     Indication: DUCHENNE MUSCULAR DYSTROPHY
     Dosage: 15 MILLIGRAM, QD
     Route: 048
     Dates: start: 20180504
  2. VYONDYS 53 [Suspect]
     Active Substance: GOLODIRSEN
     Indication: DUCHENNE MUSCULAR DYSTROPHY
     Dosage: 900 MILLIGRAM, WEEKLY
     Route: 042
     Dates: start: 20201116, end: 20201123

REACTIONS (2)
  - Type I hypersensitivity [Recovered/Resolved]
  - Anaphylactic reaction [Recovered/Resolved]

NARRATIVE: CASE EVENT DATE: 20201123
